FAERS Safety Report 13262481 (Version 1)
Quarter: 2017Q1

REPORT INFORMATION
  Report Type: Spontaneous
  Country: IT (occurrence: IT)
  Receive Date: 20170223
  Receipt Date: 20170223
  Transmission Date: 20170428
  Serious: Yes (Hospitalization)
  Sender: FDA-Public Use
  Company Number: IT-ROCHE-1896388

PATIENT
  Age: 74 Year
  Sex: Female

DRUGS (5)
  1. TICLOPIDINE [Concomitant]
     Active Substance: TICLOPIDINE
  2. RIVOTRIL [Suspect]
     Active Substance: CLONAZEPAM
     Indication: PRODUCT USED FOR UNKNOWN INDICATION
     Dosage: ^2.5 MG/ML ORAL DROPS, SOLUTION^ 10 ML BOTTLE
     Route: 048
     Dates: start: 20170206, end: 20170208
  3. RAMIPRIL. [Concomitant]
     Active Substance: RAMIPRIL
  4. INDERAL [Concomitant]
     Active Substance: PROPRANOLOL HYDROCHLORIDE
     Dosage: ^40 MG TABLETS^ 30 TABLETS
     Route: 065
  5. PATROL [Suspect]
     Active Substance: ACETAMINOPHEN\TRAMADOL HYDROCHLORIDE
     Indication: PRODUCT USED FOR UNKNOWN INDICATION
     Dosage: ^37.5 MG + 325 MG FILM-COATED TABLETS^ 20 TABLETS
     Route: 048
     Dates: start: 20170206, end: 20170208

REACTIONS (2)
  - Injury [Recovered/Resolved]
  - Syncope [Recovered/Resolved]

NARRATIVE: CASE EVENT DATE: 20170208
